FAERS Safety Report 14163559 (Version 2)
Quarter: 2017Q4

REPORT INFORMATION
  Report Type: Report from Study
  Country: US (occurrence: US)
  Receive Date: 20171106
  Receipt Date: 20171121
  Transmission Date: 20180321
  Serious: Yes (Death, Hospitalization)
  Sender: FDA-Public Use
  Company Number: US-ACTELION-A-US2017-153141

PATIENT
  Age: 70 Year
  Sex: Male

DRUGS (8)
  1. OPSUMIT [Suspect]
     Active Substance: MACITENTAN
     Indication: PULMONARY ARTERIAL HYPERTENSION
     Dosage: 10 MG, QD
     Route: 048
     Dates: start: 20150902
  2. HUMALOG [Concomitant]
     Active Substance: INSULIN LISPRO
  3. GLIMEPIRIDE. [Concomitant]
     Active Substance: GLIMEPIRIDE
  4. PAROXETINE. [Concomitant]
     Active Substance: PAROXETINE
  5. WARFARIN [Concomitant]
     Active Substance: WARFARIN
  6. FLUTICASONE. [Concomitant]
     Active Substance: FLUTICASONE
  7. VITAMIN D [Concomitant]
     Active Substance: CHOLECALCIFEROL
  8. LOSARTAN POTASSIUM. [Concomitant]
     Active Substance: LOSARTAN POTASSIUM

REACTIONS (2)
  - Death [Fatal]
  - Pulmonary hypertension [Not Recovered/Not Resolved]

NARRATIVE: CASE EVENT DATE: 20170421
